FAERS Safety Report 11232752 (Version 1)
Quarter: 2015Q3

REPORT INFORMATION
  Report Type: Spontaneous
  Country: FR (occurrence: FR)
  Receive Date: 20150701
  Receipt Date: 20150701
  Transmission Date: 20151125
  Serious: Yes (Hospitalization, Other)
  Sender: FDA-Public Use
  Company Number: FR-OTSUKA-2015_004374

PATIENT
  Age: 23 Year
  Sex: Female

DRUGS (4)
  1. LOXAPAC [Concomitant]
     Active Substance: LOXAPINE SUCCINATE
     Indication: AGITATION
     Dosage: 15 DROPS, UNK
     Route: 048
  2. VALIUM [Concomitant]
     Active Substance: DIAZEPAM
     Indication: AGITATION
     Dosage: UNK N/A, UNK
     Route: 048
  3. ABILIFY [Suspect]
     Active Substance: ARIPIPRAZOLE
     Indication: MANIA
     Dosage: 15 MG, ONCE
     Route: 048
     Dates: start: 20150526, end: 20150610
  4. ABILIFY MAINTENA [Suspect]
     Active Substance: ARIPIPRAZOLE
     Indication: MANIA
     Dosage: 400 MG, QM
     Route: 030
     Dates: start: 20150609, end: 20150609

REACTIONS (2)
  - Off label use [Unknown]
  - Mania [Recovering/Resolving]

NARRATIVE: CASE EVENT DATE: 20150610
